FAERS Safety Report 6518411-7 (Version None)
Quarter: 2009Q4

REPORT INFORMATION
  Report Type: 
  Country: None (occurrence: None)
  Receive Date: 20091225
  Receipt Date: 20091208
  Transmission Date: 20100525
  Serious: No
  Sender: FDA-Public Use
  Company Number: US-BAYER-200937813NA

PATIENT
  Age: 26 Year
  Sex: Female

DRUGS (1)
  1. MIRENA [Suspect]
     Indication: CONTRACEPTION
     Dosage: CONTINUOUS
     Route: 015
     Dates: start: 20081001

REACTIONS (3)
  - ABDOMINAL PAIN UPPER [None]
  - PREGNANCY WITH CONTRACEPTIVE DEVICE [None]
  - VAGINAL HAEMORRHAGE [None]
